FAERS Safety Report 10048069 (Version 1)
Quarter: 2014Q1

REPORT INFORMATION
  Report Type: Spontaneous
  Country: US (occurrence: US)
  Receive Date: 20140331
  Receipt Date: 20140331
  Transmission Date: 20141002
  Serious: No
  Sender: FDA-Public Use
  Company Number: US-009507513-1403USA009640

PATIENT
  Age: 57 Year
  Sex: Male

DRUGS (7)
  1. PRINIVIL [Suspect]
     Route: 048
  2. MOTRIN [Concomitant]
  3. FLEXERIL [Concomitant]
  4. AMBIEN [Concomitant]
  5. ADDERALL TABLETS [Concomitant]
  6. AMARYL [Concomitant]
  7. EFFEXOR XR [Concomitant]
     Dosage: UNK, BID

REACTIONS (1)
  - Drug hypersensitivity [Unknown]
